FAERS Safety Report 11173232 (Version 1)
Quarter: 2015Q2

REPORT INFORMATION
  Report Type: Spontaneous
  Country: US (occurrence: US)
  Receive Date: 20150608
  Receipt Date: 20150608
  Transmission Date: 20150821
  Serious: Yes (Hospitalization, Other)
  Sender: FDA-Public Use
  Company Number: US-GLAXOSMITHKLINE INC.-US2015GSK077902

PATIENT
  Age: 62 Year
  Sex: Female
  Weight: 126.98 kg

DRUGS (3)
  1. ECOTRIN [Concomitant]
     Active Substance: ASPIRIN
  2. METFORMIN [Concomitant]
     Active Substance: METFORMIN HYDROCHLORIDE
  3. MEKINIST [Suspect]
     Active Substance: TRAMETINIB DIMETHYL SULFOXIDE
     Indication: MALIGNANT MELANOMA
     Dosage: 2 MG, QD
     Route: 048
     Dates: start: 20150430, end: 20150521

REACTIONS (12)
  - Abasia [Unknown]
  - Muscle tone disorder [Unknown]
  - Generalised oedema [Unknown]
  - Local swelling [Unknown]
  - Pancreatic disorder [Unknown]
  - Loss of consciousness [Unknown]
  - Muscle atrophy [Unknown]
  - Dehydration [Unknown]
  - Vomiting [Unknown]
  - Contusion [Unknown]
  - Myositis [Unknown]
  - Urinary tract infection [Unknown]

NARRATIVE: CASE EVENT DATE: 20150521
